FAERS Safety Report 8376108-5 (Version None)
Quarter: 2012Q2

REPORT INFORMATION
  Report Type: 
  Country: None (occurrence: None)
  Receive Date: 20120522
  Receipt Date: 20120511
  Transmission Date: 20120825
  Serious: Yes (Other)
  Sender: FDA-Public Use
  Company Number: US-BAYER-2012-002938

PATIENT
  Age: 28 Year
  Sex: Female

DRUGS (6)
  1. YAZ [Suspect]
     Dosage: UNK
     Route: 048
     Dates: start: 20070401, end: 20080501
  2. PREVACID [Concomitant]
     Dosage: 30 MG, UNK
     Dates: start: 20070122, end: 20070717
  3. DARVOCET [Concomitant]
  4. PROPOXYPHENE NAPSYLATE W/ ACETAMINOPHEN [Concomitant]
     Dosage: 100-65
     Dates: start: 20070724
  5. CITALOPRAM HYDROBROMIDE [Concomitant]
     Dosage: 20 MG, UNK
     Dates: start: 20070122, end: 20070813
  6. CELEXA [Concomitant]

REACTIONS (2)
  - PAIN [None]
  - CHOLECYSTITIS CHRONIC [None]
